FAERS Safety Report 4818108-5 (Version None)
Quarter: 2005Q4

REPORT INFORMATION
  Report Type: 
  Country: None (occurrence: None)
  Receive Date: 20051102
  Receipt Date: 20051027
  Transmission Date: 20060501
  Serious: Yes (Life-Threatening)
  Sender: FDA-Public Use
  Company Number: PL-GLAXOSMITHKLINE-B0399081A

PATIENT
  Age: 80 Year
  Sex: Male

DRUGS (9)
  1. ZINACEF [Suspect]
     Indication: PNEUMONIA
     Dosage: 1.5G PER DAY
     Route: 065
     Dates: start: 20050907, end: 20050907
  2. THEOPHYLLINE [Concomitant]
  3. SALMETEROL AEROSOL [Concomitant]
  4. BROMHEXIN HYDROCHLORIDE [Concomitant]
  5. GLICLAZIDE [Concomitant]
  6. AUGMENTIN '125' [Concomitant]
  7. INSULIN [Concomitant]
  8. AMINOPHYLLINE [Concomitant]
  9. ACARBOSE [Concomitant]

REACTIONS (1)
  - DYSPNOEA [None]
